FAERS Safety Report 17379120 (Version 1)
Quarter: 2020Q1

REPORT INFORMATION
  Report Type: Spontaneous
  Country: US (occurrence: US)
  Receive Date: 20200206
  Receipt Date: 20200206
  Transmission Date: 20200409
  Serious: No
  Sender: FDA-Public Use
  Company Number: US-ABBVIE-19K-163-2660544-00

PATIENT
  Age: 56 Year
  Sex: Female
  Weight: 81.72 kg

DRUGS (5)
  1. HUMIRA [Suspect]
     Active Substance: ADALIMUMAB
     Indication: RHEUMATOID ARTHRITIS
     Route: 058
     Dates: start: 201007, end: 2014
  2. METHOTREXATE. [Suspect]
     Active Substance: METHOTREXATE
     Indication: RHEUMATOID ARTHRITIS
     Route: 048
     Dates: start: 2010, end: 2013
  3. ENBREL [Suspect]
     Active Substance: ETANERCEPT
     Indication: RHEUMATOID ARTHRITIS
     Route: 065
     Dates: start: 201811, end: 201811
  4. ACTEMRA [Suspect]
     Active Substance: TOCILIZUMAB
     Indication: RHEUMATOID ARTHRITIS
     Route: 065
     Dates: start: 2014, end: 201809
  5. XELJANZ XR [Suspect]
     Active Substance: TOFACITINIB CITRATE
     Indication: RHEUMATOID ARTHRITIS
     Route: 048
     Dates: start: 20181204

REACTIONS (19)
  - Therapeutic product effect decreased [Unknown]
  - Arthralgia [Recovered/Resolved]
  - Rash [Recovered/Resolved]
  - Back pain [Unknown]
  - Cough [Unknown]
  - Swelling [Recovering/Resolving]
  - Drug ineffective [Recovered/Resolved]
  - Muscle spasms [Unknown]
  - Coccydynia [Unknown]
  - Gastric disorder [Recovered/Resolved]
  - Urinary tract infection [Recovered/Resolved]
  - Pain in extremity [Recovering/Resolving]
  - Visual impairment [Recovered/Resolved]
  - Groin pain [Unknown]
  - Sinusitis [Recovered/Resolved]
  - Muscle tightness [Unknown]
  - Therapeutic response shortened [Unknown]
  - Peripheral swelling [Recovering/Resolving]
  - Arthralgia [Unknown]

NARRATIVE: CASE EVENT DATE: 2010
